FAERS Safety Report 13037243 (Version 1)
Quarter: 2016Q4

REPORT INFORMATION
  Report Type: Not Available
  Country: None (occurrence: US)
  Receive Date: 20161216
  Receipt Date: 20161216
  Transmission Date: 20170207
  Serious: No
  Sender: FDA-Public Use
  Company Number: US-AKORN-45787

PATIENT
  Age: 79 Year
  Sex: Female

DRUGS (1)
  1. COSOPT PF [Suspect]
     Active Substance: DORZOLAMIDE HYDROCHLORIDE\TIMOLOL MALEATE

REACTIONS (2)
  - Parosmia [Unknown]
  - Eye irritation [None]
